FAERS Safety Report 21977664 (Version 8)
Quarter: 2024Q1

REPORT INFORMATION
  Report Type: Report from Study
  Country: US (occurrence: US)
  Receive Date: 20230210
  Receipt Date: 20240202
  Transmission Date: 20240410
  Serious: Yes (Other)
  Sender: FDA-Public Use
  Company Number: US-002147023-NVSC2023US025554

PATIENT
  Sex: Female

DRUGS (1)
  1. KESIMPTA [Suspect]
     Active Substance: OFATUMUMAB
     Indication: Multiple sclerosis
     Dosage: 20 MG, QMO
     Route: 058
     Dates: start: 20230122

REACTIONS (6)
  - Optic neuritis [Unknown]
  - Vision blurred [Unknown]
  - Eye pain [Unknown]
  - Epistaxis [Unknown]
  - Injection site mass [Unknown]
  - Injection site pain [Unknown]
